FAERS Safety Report 6568731-5 (Version None)
Quarter: 2010Q1

REPORT INFORMATION
  Report Type: 
  Country: None (occurrence: None)
  Receive Date: 20100203
  Receipt Date: 20100128
  Transmission Date: 20100710
  Serious: Yes (Other)
  Sender: FDA-Public Use
  Company Number: PHHO2009DE04768

PATIENT
  Sex: Female
  Weight: 60 kg

DRUGS (6)
  1. ZOLEDRONATE T29581+SOLINJ+BM [Suspect]
     Dosage: 4MG
     Route: 042
     Dates: start: 20071114, end: 20080917
  2. CALCIUM [Concomitant]
  3. VITAMIN D [Concomitant]
  4. DEXAMETHASONE [Concomitant]
  5. CORTICOSTEROIDS [Concomitant]
  6. SANDOCAL [Concomitant]

REACTIONS (20)
  - CONCOMITANT DISEASE PROGRESSION [None]
  - DENTAL PROSTHESIS PLACEMENT [None]
  - ERYTHEMA [None]
  - FIBROMA [None]
  - GINGIVITIS [None]
  - IMPAIRED HEALING [None]
  - JAW OPERATION [None]
  - MAXILLOFACIAL OPERATION [None]
  - OEDEMA [None]
  - OSTEOMYELITIS [None]
  - OSTEONECROSIS [None]
  - PERIODONTITIS [None]
  - RADICULAR CYST [None]
  - SEQUESTRECTOMY [None]
  - SOFT TISSUE INFECTION [None]
  - TOOTH EXTRACTION [None]
  - TOOTH LOSS [None]
  - TOOTH REPAIR [None]
  - TOOTHACHE [None]
  - WOUND CLOSURE [None]
